FAERS Safety Report 4935054-7 (Version None)
Quarter: 2006Q1

REPORT INFORMATION
  Report Type: 
  Country: None (occurrence: None)
  Receive Date: 20060302
  Receipt Date: 20060215
  Transmission Date: 20060701
  Serious: Yes (Hospitalization)
  Sender: FDA-Public Use
  Company Number: US200602003244

PATIENT
  Age: 28 Year
  Sex: Female

DRUGS (1)
  1. HUMALOG [Suspect]
     Indication: DIABETES MELLITUS INSULIN-DEPENDENT
     Dosage: SUB. PUMP
     Route: 058
     Dates: start: 19960101

REACTIONS (2)
  - BENIGN INTRACRANIAL HYPERTENSION [None]
  - BLOOD GLUCOSE INCREASED [None]
